FAERS Safety Report 17241199 (Version 1)
Quarter: 2020Q1

REPORT INFORMATION
  Report Type: Spontaneous
  Country: CN (occurrence: CN)
  Receive Date: 20200107
  Receipt Date: 20200107
  Transmission Date: 20200409
  Serious: Yes (Disabling)
  Sender: FDA-Public Use
  Company Number: CN-BAXTER-2020BAX000029

PATIENT
  Age: 54 Year
  Sex: Female
  Weight: 53 kg

DRUGS (11)
  1. 0.9% SODIUM CHLORIDE INJECTION [Suspect]
     Active Substance: SODIUM CHLORIDE
     Dosage: 0.9% SODIUM CHLORIDE 100 ML + ESOMEPRAZOLE SODIUM 40 MG
     Route: 041
     Dates: start: 20191219
  2. PHARMORUBICIN [Suspect]
     Active Substance: EPIRUBICIN
     Dosage: DAY 2: 0.9% SODIUM CHLORIDE INJECTION 100 ML + EPIRUBICIN HYDROCHLORIDE
     Route: 041
     Dates: start: 20191220, end: 20191220
  3. 0.9% SODIUM CHLORIDE INJECTION [Suspect]
     Active Substance: SODIUM CHLORIDE
     Dosage: 0.9% SODIUM CHLORIDE100ML + TROPISETRON HYDROCHLORIDE 5 MG
     Route: 041
     Dates: start: 20191219
  4. 0.9% SODIUM CHLORIDE INJECTION [Suspect]
     Active Substance: SODIUM CHLORIDE
     Indication: MEDICATION DILUTION
     Dosage: DAY 1: 0.9% SODIUM CHLORIDE + CYCLOPHOSPHAMIDE 800 MG
     Route: 041
     Dates: start: 20191219, end: 20191219
  5. ENDOXAN [Suspect]
     Active Substance: CYCLOPHOSPHAMIDE
     Indication: BREAST CANCER FEMALE
     Dosage: DAY 1; CYCLOPHOSPHAMIDE 0.8 GRAM + 0.9% SODIUM CHLORIDE 100 ML
     Route: 041
     Dates: start: 20191219, end: 20191219
  6. PHARMORUBICIN [Suspect]
     Active Substance: EPIRUBICIN
     Indication: BREAST CANCER FEMALE
     Dosage: DAY 1: 0.9% SODIUM CHLORIDE INJECTION 100 ML + EPIRUBICIN HYDROCHLORIDE
     Route: 041
     Dates: start: 20191219, end: 20191219
  7. SODIUM CHLORIDE. [Suspect]
     Active Substance: SODIUM CHLORIDE
     Dosage: DAY 2: 0.9% SODIUM CHLORIDE + EPIRUBICIN HYDROCHLORIDE 70 MG
     Route: 041
     Dates: start: 20191219, end: 20191219
  8. ESOMEPRAZOLE SODIUM. [Suspect]
     Active Substance: ESOMEPRAZOLE SODIUM
     Indication: PROPHYLAXIS
     Dosage: 0.9% SODIUM CHLORIDE 100ML + ESOMEPRAZOLE SODIUM 40 MG
     Route: 041
     Dates: start: 20191219
  9. TROPISETRON HYDROCHLORIDE [Suspect]
     Active Substance: TROPISETRON HYDROCHLORIDE
     Indication: PROPHYLAXIS
     Dosage: 0.9% SODIUM CHLORIDE100ML + TROPISETRON HYDROCHLORIDE 5 MG
     Route: 041
     Dates: start: 20191219
  10. ONDANSETRON HYDROCHLORIDE. [Suspect]
     Active Substance: ONDANSETRON HYDROCHLORIDE
     Indication: ANTIEMETIC SUPPORTIVE CARE
     Dosage: TABLET;
     Route: 048
     Dates: start: 20191219
  11. SODIUM CHLORIDE. [Suspect]
     Active Substance: SODIUM CHLORIDE
     Indication: MEDICATION DILUTION
     Dosage: DAY 1: 0.9% SODIUM CHLORIDE  + EPIRUBICIN HYDROCHLORIDE 60 MG
     Route: 041
     Dates: start: 20191219, end: 20191219

REACTIONS (4)
  - Vomiting [Recovered/Resolved]
  - Neutrophil count decreased [Unknown]
  - Nausea [Recovered/Resolved]
  - White blood cell count decreased [Unknown]

NARRATIVE: CASE EVENT DATE: 20191219
